FAERS Safety Report 19988658 (Version 1)
Quarter: 2021Q4

REPORT INFORMATION
  Report Type: Report from Study
  Country: US (occurrence: US)
  Receive Date: 20211024
  Receipt Date: 20211024
  Transmission Date: 20220303
  Serious: Yes (Other)
  Sender: FDA-Public Use
  Company Number: 2021A655462

PATIENT
  Age: 6289 Day
  Sex: Male
  Weight: 49.1 kg

DRUGS (18)
  1. KOSELUGO [Suspect]
     Active Substance: SELUMETINIB
     Indication: Neurofibromatosis
     Route: 048
     Dates: start: 20210709, end: 20210820
  2. KOSELUGO [Suspect]
     Active Substance: SELUMETINIB
     Indication: Blood phosphorus increased
     Route: 048
     Dates: start: 20210709, end: 20210820
  3. KOSELUGO [Suspect]
     Active Substance: SELUMETINIB
     Indication: Neurofibromatosis
     Route: 048
     Dates: start: 20210827, end: 20210901
  4. KOSELUGO [Suspect]
     Active Substance: SELUMETINIB
     Indication: Blood phosphorus increased
     Route: 048
     Dates: start: 20210827, end: 20210901
  5. KOSELUGO [Suspect]
     Active Substance: SELUMETINIB
     Indication: Neurofibromatosis
     Route: 048
     Dates: start: 20210902, end: 20210929
  6. KOSELUGO [Suspect]
     Active Substance: SELUMETINIB
     Indication: Blood phosphorus increased
     Route: 048
     Dates: start: 20210902, end: 20210929
  7. KOSELUGO [Suspect]
     Active Substance: SELUMETINIB
     Indication: Neurofibromatosis
     Route: 048
     Dates: start: 20210930
  8. KOSELUGO [Suspect]
     Active Substance: SELUMETINIB
     Indication: Blood phosphorus increased
     Route: 048
     Dates: start: 20210930
  9. KOSELUGO [Suspect]
     Active Substance: SELUMETINIB
     Indication: Neurofibromatosis
     Route: 048
  10. KOSELUGO [Suspect]
     Active Substance: SELUMETINIB
     Indication: Blood phosphorus increased
     Route: 048
  11. KOSELUGO [Suspect]
     Active Substance: SELUMETINIB
     Indication: Neurofibromatosis
     Route: 048
  12. KOSELUGO [Suspect]
     Active Substance: SELUMETINIB
     Indication: Blood phosphorus increased
     Route: 048
  13. KOSELUGO [Suspect]
     Active Substance: SELUMETINIB
     Indication: Neurofibromatosis
     Route: 048
  14. KOSELUGO [Suspect]
     Active Substance: SELUMETINIB
     Indication: Blood phosphorus increased
     Route: 048
  15. CALCIUM ACETATE [Concomitant]
     Active Substance: CALCIUM ACETATE
     Indication: Blood phosphorus increased
     Dates: start: 20210921
  16. TUMS [Concomitant]
     Active Substance: CALCIUM CARBONATE
     Indication: Blood phosphorus increased
     Dates: start: 20210820
  17. METHYOPHENIDATE HCL ER [Concomitant]
  18. PROAIR HFA [Concomitant]
     Active Substance: ALBUTEROL SULFATE

REACTIONS (2)
  - Dermatitis acneiform [Recovered/Resolved]
  - Blood phosphorus increased [Not Recovered/Not Resolved]

NARRATIVE: CASE EVENT DATE: 20210723
